FAERS Safety Report 13762512 (Version 3)
Quarter: 2017Q3

REPORT INFORMATION
  Report Type: Spontaneous
  Country: US (occurrence: US)
  Receive Date: 20170718
  Receipt Date: 20170817
  Transmission Date: 20171127
  Serious: No
  Sender: FDA-Public Use
  Company Number: US-PFIZER INC-2017310310

PATIENT
  Age: 71 Year
  Sex: Male

DRUGS (1)
  1. EUCRISA [Suspect]
     Active Substance: CRISABOROLE
     Dosage: UNK
     Route: 061

REACTIONS (4)
  - Burning sensation [Unknown]
  - Pruritus [Recovering/Resolving]
  - Erythema [Unknown]
  - Hypersensitivity [Unknown]
